FAERS Safety Report 8261117-7 (Version None)
Quarter: 2012Q2

REPORT INFORMATION
  Report Type: 
  Country: None (occurrence: None)
  Receive Date: 20120405
  Receipt Date: 20120402
  Transmission Date: 20120825
  Serious: Yes (Death)
  Sender: FDA-Public Use
  Company Number: PHEH2011US02843

PATIENT
  Sex: Male
  Weight: 82.9 kg

DRUGS (14)
  1. ANTIHISTAMINES [Concomitant]
  2. SENNA [Concomitant]
  3. KLOR-CON [Concomitant]
  4. KEPPRA [Concomitant]
     Indication: CONVULSION
  5. MULTI-VITAMINS [Concomitant]
  6. FLOMAX [Concomitant]
     Indication: BENIGN PROSTATIC HYPERPLASIA
  7. NPLATE [Concomitant]
     Indication: PLATELET COUNT DECREASED
  8. PRILOSEC [Concomitant]
  9. ASPIRIN [Concomitant]
  10. METOPROLOL TARTRATE [Concomitant]
     Indication: HYPERTENSION
  11. SODIUM CHLORIDE [Concomitant]
  12. EXJADE [Suspect]
     Indication: IRON OVERLOAD
     Dosage: 1500 MG, QD
     Route: 048
     Dates: start: 20110614
  13. NORVASC [Concomitant]
     Indication: HYPERTENSION
  14. ACETAMINOPHEN [Concomitant]

REACTIONS (2)
  - SEPSIS [None]
  - PULMONARY HAEMORRHAGE [None]
